FAERS Safety Report 9776777 (Version 3)
Quarter: 2013Q4

REPORT INFORMATION
  Report Type: Spontaneous
  Country: US (occurrence: US)
  Receive Date: 20131220
  Receipt Date: 20131231
  Transmission Date: 20140711
  Serious: Yes (Other)
  Sender: FDA-Public Use
  Company Number: US-ASTRAZENECA-2013SE89265

PATIENT
  Age: 71 Year
  Sex: Female
  Weight: 76.2 kg

DRUGS (9)
  1. FASLODEX [Suspect]
     Indication: BREAST CANCER
     Route: 030
     Dates: start: 20121220
  2. FASLODEX [Suspect]
     Indication: BREAST CANCER
     Route: 030
     Dates: start: 201301
  3. LEXAPRO [Suspect]
     Route: 065
  4. LETROZOL [Suspect]
     Indication: BREAST CANCER
     Route: 048
  5. LYRICA [Suspect]
     Indication: PAIN
     Route: 065
     Dates: start: 201303
  6. GABAPENTIN [Suspect]
     Indication: PAIN
     Route: 065
  7. UNSPECIFIED STEROID TYPE MEDICATION [Suspect]
     Indication: PAIN
     Route: 065
  8. XEGVA [Concomitant]
     Indication: BONE DISORDER
  9. ANOTHER UNIDENTIFIED MEDICATION [Concomitant]
     Indication: PAIN

REACTIONS (43)
  - Breast cancer [Unknown]
  - Nerve injury [Unknown]
  - Arthralgia [Not Recovered/Not Resolved]
  - Back pain [Unknown]
  - Musculoskeletal stiffness [Unknown]
  - Agitation [Unknown]
  - Hypoaesthesia [Not Recovered/Not Resolved]
  - Limb discomfort [Not Recovered/Not Resolved]
  - Bone pain [Not Recovered/Not Resolved]
  - Constipation [Not Recovered/Not Resolved]
  - Weight fluctuation [Not Recovered/Not Resolved]
  - Diverticulitis [Not Recovered/Not Resolved]
  - Hepatic steatosis [Not Recovered/Not Resolved]
  - Hypothyroidism [Not Recovered/Not Resolved]
  - Respiratory tract infection [Not Recovered/Not Resolved]
  - Cough [Not Recovered/Not Resolved]
  - Laryngitis [Not Recovered/Not Resolved]
  - Quality of life decreased [Unknown]
  - Feeling abnormal [Unknown]
  - Discomfort [Unknown]
  - Adverse drug reaction [Unknown]
  - Dizziness [Unknown]
  - Pain [Unknown]
  - Muscle atrophy [Unknown]
  - Myalgia [Unknown]
  - Muscle spasms [Unknown]
  - Urine odour abnormal [Unknown]
  - Abnormal faeces [Unknown]
  - Skin odour abnormal [Unknown]
  - Sedation [Unknown]
  - Mental impairment [Unknown]
  - Fatigue [Not Recovered/Not Resolved]
  - Decreased appetite [Not Recovered/Not Resolved]
  - Lethargy [Not Recovered/Not Resolved]
  - Injection site reaction [Not Recovered/Not Resolved]
  - Injection site pain [Unknown]
  - Fatigue [Unknown]
  - Listless [Unknown]
  - Nausea [Unknown]
  - Vomiting [Unknown]
  - Drug hypersensitivity [Unknown]
  - Asthenia [Unknown]
  - Intentional drug misuse [Unknown]
